FAERS Safety Report 8115904-6 (Version None)
Quarter: 2012Q1

REPORT INFORMATION
  Report Type: 
  Country: None (occurrence: None)
  Receive Date: 20120206
  Receipt Date: 20120125
  Transmission Date: 20120608
  Serious: Yes (Death, Hospitalization)
  Sender: FDA-Public Use
  Company Number: SE-ROCHE-1035346

PATIENT
  Age: 75 Year
  Sex: Male

DRUGS (4)
  1. LUCENTIS [Suspect]
     Indication: AGE-RELATED MACULAR DEGENERATION
     Route: 050
     Dates: start: 20110802
  2. LUCENTIS [Suspect]
     Route: 050
     Dates: start: 20110929, end: 20111101
  3. LUCENTIS [Suspect]
     Route: 050
     Dates: start: 20110830
  4. LEVOTHYROXINE SODIUM [Concomitant]

REACTIONS (5)
  - CORONARY ARTERY STENOSIS [None]
  - TROPONIN T INCREASED [None]
  - MYOCARDIAL INFARCTION [None]
  - CARDIAC ARREST [None]
  - C-REACTIVE PROTEIN INCREASED [None]
